FAERS Safety Report 7388376-7 (Version None)
Quarter: 2011Q2

REPORT INFORMATION
  Report Type: 
  Country: None (occurrence: None)
  Receive Date: 20110401
  Receipt Date: 20110321
  Transmission Date: 20111010
  Serious: Yes (Hospitalization)
  Sender: FDA-Public Use
  Company Number: PHHY2011NL23546

PATIENT
  Sex: Male

DRUGS (2)
  1. ZOMETA [Suspect]
     Dosage: 4MG/5ML PER 28 DAYS
     Dates: start: 20110321
  2. ZOMETA [Suspect]
     Indication: PROSTATE CANCER METASTATIC
     Dosage: 4MG/5ML PER 28 DAYS
     Dates: start: 20110221

REACTIONS (3)
  - CYSTITIS NONINFECTIVE [None]
  - BLOOD URINE PRESENT [None]
  - INFLUENZA LIKE ILLNESS [None]
